FAERS Safety Report 4555352-9 (Version None)
Quarter: 2005Q1

REPORT INFORMATION
  Report Type: 
  Country: None (occurrence: None)
  Receive Date: 20050118
  Receipt Date: 20050118
  Transmission Date: 20050727
  Serious: Yes (Other)
  Sender: FDA-Public Use
  Company Number: None

PATIENT
  Age: 36 Year
  Sex: Female
  Weight: 76.2043 kg

DRUGS (1)
  1. ROBITUSSIN MAX STRENGTH DEXTROMETHORPHAN HBR USP 15 MG WHITEHALL-ROBIN [Suspect]
     Indication: COUGH
     Dosage: 10 ML 3.5 HOURS ORAL
     Route: 048
     Dates: start: 20050113, end: 20050114

REACTIONS (4)
  - DISSOCIATION [None]
  - DRUG INEFFECTIVE [None]
  - HALLUCINATION [None]
  - MEDICATION ERROR [None]
